FAERS Safety Report 8919001 (Version 1)
Quarter: 2012Q4

REPORT INFORMATION
  Report Type: 
  Country: US (occurrence: US)
  Receive Date: 20121121
  Receipt Date: 20121121
  Transmission Date: 20130627
  Serious: No
  Sender: FDA-Public Use
  Company Number: US-ASTRAZENECA-2012SE23416

PATIENT
  Age: 30 Year
  Sex: Male
  Weight: 93 kg

DRUGS (3)
  1. NEXIUM [Suspect]
     Indication: GASTROOESOPHAGEAL REFLUX DISEASE
     Dosage: FOUR TO FIVE, BEFORE OR AFETR MEALS
     Route: 048
  2. NEXIUM [Suspect]
     Indication: MALLORY-WEISS SYNDROME
     Dosage: FOUR TO FIVE, BEFORE OR AFETR MEALS
     Route: 048
  3. NEXIUM [Suspect]
     Indication: GASTRITIS
     Dosage: FOUR TO FIVE, BEFORE OR AFETR MEALS
     Route: 048

REACTIONS (4)
  - Abdominal pain upper [Unknown]
  - Off label use [Unknown]
  - Off label use [Unknown]
  - Intentional drug misuse [Unknown]
